FAERS Safety Report 16822926 (Version 1)
Quarter: 2019Q3

REPORT INFORMATION
  Report Type: Spontaneous
  Country: US (occurrence: US)
  Receive Date: 20190918
  Receipt Date: 20190918
  Transmission Date: 20191005
  Serious: Yes (Death)
  Sender: FDA-Public Use
  Company Number: US-PFIZER INC-2019385920

PATIENT
  Age: 33 Year
  Sex: Female

DRUGS (17)
  1. CYTARABINE. [Concomitant]
     Active Substance: CYTARABINE
     Indication: ACUTE MYELOID LEUKAEMIA
     Dosage: UNK (INDUCTION CHEMOTHERAPY)
  2. METRONIDAZOLE. [Concomitant]
     Active Substance: METRONIDAZOLE
     Dosage: UNK
  3. AMPHOTERICIN B. [Suspect]
     Active Substance: AMPHOTERICIN B
     Indication: FUSARIUM INFECTION
     Dosage: 5 MG/KG, 2X/DAY (LIPOSOMAL)
     Route: 042
  4. GM COLONY STIMULATING FACTOR (GRANULOCYTEMACROPHAGE COLONY-STIMULATING FACTOR)? [Suspect]
     Active Substance: GRANULOCYTE COLONY-STIMULATING FACTOR NOS
     Indication: FUSARIUM INFECTION
     Dosage: 500 UG/ML
     Route: 058
  5. VORICONAZOLE. [Suspect]
     Active Substance: VORICONAZOLE
     Indication: FUSARIUM INFECTION
     Dosage: UNK (PROPHYLACTIC)
  6. VORICONAZOLE. [Suspect]
     Active Substance: VORICONAZOLE
     Dosage: 4 MG/KG, 2X/DAY (EVERY 12 HOURS)
  7. CASPOFUNGIN [Suspect]
     Active Substance: CASPOFUNGIN
     Indication: FUSARIUM INFECTION
     Dosage: UNK
  8. VORICONAZOLE. [Suspect]
     Active Substance: VORICONAZOLE
     Dosage: 100 UG, UNK (BILATERAL INTRAVITREAL)
  9. VORICONAZOLE. [Suspect]
     Active Substance: VORICONAZOLE
     Dosage: 33 UG, UNK (SEVEN INTRAVITREAL DOSES, EVERY 3?5 DAYS IN EACH EYE)
  10. TERBINAFINE. [Suspect]
     Active Substance: TERBINAFINE
     Indication: FUSARIUM INFECTION
     Dosage: 250 MG, DAILY
     Route: 048
  11. AZACITIDINE. [Concomitant]
     Active Substance: AZACITIDINE
     Indication: ACUTE MYELOID LEUKAEMIA
     Dosage: UNK(MAINTENANCE TREATMENT)
  12. CASPOFUNGIN [Suspect]
     Active Substance: CASPOFUNGIN
     Dosage: 50 MG, DAILY
     Route: 042
  13. INTERFERON GAMMA-1B [Suspect]
     Active Substance: INTERFERON GAMMA-1B
     Indication: FUSARIUM INFECTION
     Dosage: 50 UG/M2
  14. PIPERACILLIN AND TAZOBACTAM [Concomitant]
     Active Substance: PIPERACILLIN SODIUM\TAZOBACTAM SODIUM
     Indication: NEUTROPENIC COLITIS
     Dosage: UNK
     Route: 042
  15. CIPROFLOXACIN. [Concomitant]
     Active Substance: CIPROFLOXACIN
     Dosage: UNK
     Route: 048
  16. AMPHOTERICIN B. [Suspect]
     Active Substance: AMPHOTERICIN B
     Dosage: 10 UG, UNK
     Route: 042
  17. IDARUBICIN [Concomitant]
     Active Substance: IDARUBICIN
     Indication: ACUTE MYELOID LEUKAEMIA
     Dosage: UNK (INDUCTION CHEMOTHERAPY)

REACTIONS (1)
  - Therapeutic product effect delayed [Fatal]
